FAERS Safety Report 7260551-1 (Version None)
Quarter: 2011Q1

REPORT INFORMATION
  Report Type: 
  Country: None (occurrence: None)
  Receive Date: 20110130
  Receipt Date: 20101220
  Transmission Date: 20110831
  Serious: No
  Sender: FDA-Public Use
  Company Number: US-ABBOTT-10P-163-0692867-00

PATIENT
  Sex: Female

DRUGS (4)
  1. CALCIUM [Concomitant]
     Indication: PRODUCT USED FOR UNKNOWN INDICATION
  2. IMMITREX [Concomitant]
     Indication: MIGRAINE
  3. HUMIRA [Suspect]
     Indication: COLITIS ULCERATIVE
     Dates: start: 20101001
  4. ASACOL HD [Concomitant]
     Indication: COLITIS ULCERATIVE

REACTIONS (1)
  - LOWER RESPIRATORY TRACT INFECTION [None]
